FAERS Safety Report 14178962 (Version 2)
Quarter: 2017Q4

REPORT INFORMATION
  Report Type: Spontaneous
  Country: US (occurrence: US)
  Receive Date: 20171110
  Receipt Date: 20171226
  Transmission Date: 20180321
  Serious: Yes (Other)
  Sender: FDA-Public Use
  Company Number: US-BAUSCH-BL-2017-030976

PATIENT
  Age: 42 Year
  Sex: Female

DRUGS (4)
  1. ACETYLSALICYLIC ACID [Concomitant]
     Active Substance: ASPIRIN
     Indication: PROPHYLAXIS
  2. DEXAMETHASONE. [Suspect]
     Active Substance: DEXAMETHASONE
     Indication: NEUROPATHY PERIPHERAL
     Dosage: 2 DOSES
     Route: 042
  3. CARFILZOMIB 30 MG [Suspect]
     Active Substance: CARFILZOMIB
     Indication: NEUROPATHY PERIPHERAL
     Dosage: 3 DOSES
     Route: 042
  4. LENALIDOMIDE [Suspect]
     Active Substance: LENALIDOMIDE
     Indication: NEUROPATHY PERIPHERAL
     Route: 048

REACTIONS (4)
  - Drug interaction [Unknown]
  - Cardiotoxicity [Recovered/Resolved]
  - Ventricular tachycardia [Recovered/Resolved]
  - Myocardial fibrosis [Not Recovered/Not Resolved]
